FAERS Safety Report 19818299 (Version 1)
Quarter: 2021Q3

REPORT INFORMATION
  Report Type: Report from Study
  Country: GB (occurrence: GB)
  Receive Date: 20210911
  Receipt Date: 20210911
  Transmission Date: 20211014
  Serious: Yes (Other)
  Sender: FDA-Public Use
  Company Number: NVSC2021GB203484

PATIENT
  Sex: Female

DRUGS (1)
  1. HYRIMOZ [Suspect]
     Active Substance: ADALIMUMAB-ADAZ
     Indication: INFLAMMATORY BOWEL DISEASE
     Dosage: 40 MG, Q2W
     Route: 065
     Dates: start: 20200424

REACTIONS (1)
  - Intestinal obstruction [Unknown]
